FAERS Safety Report 22166794 (Version 1)
Quarter: 2023Q2

REPORT INFORMATION
  Report Type: Spontaneous
  Country: JP (occurrence: JP)
  Receive Date: 20230403
  Receipt Date: 20230403
  Transmission Date: 20230721
  Serious: Yes (Other)
  Sender: FDA-Public Use
  Company Number: JP-PFIZER INC-202300138394

PATIENT

DRUGS (1)
  1. METHOTREXATE SODIUM [Suspect]
     Active Substance: METHOTREXATE SODIUM
     Indication: Encephalitis autoimmune

REACTIONS (3)
  - Behcet^s syndrome [Unknown]
  - Off label use [Unknown]
  - Therapeutic product ineffective for unapproved indication [Unknown]
